FAERS Safety Report 20819054 (Version 26)
Quarter: 2023Q2

REPORT INFORMATION
  Report Type: Spontaneous
  Country: CA (occurrence: CA)
  Receive Date: 20220512
  Receipt Date: 20230517
  Transmission Date: 20230721
  Serious: Yes (Hospitalization, Other)
  Sender: FDA-Public Use
  Company Number: CA-PFIZER INC-202200448503

PATIENT
  Age: 65 Year
  Sex: Female
  Weight: 75 kg

DRUGS (20)
  1. TRAZIMERA [Suspect]
     Active Substance: TRASTUZUMAB-QYYP
     Indication: Salivary gland cancer
     Dosage: 8 MG/KG ON DAY 1, 400 MG
     Route: 042
     Dates: start: 20220502, end: 2022
  2. TRAZIMERA [Suspect]
     Active Substance: TRASTUZUMAB-QYYP
     Dosage: 8 MG/KG ON DAY 1, 166 MG
     Route: 042
     Dates: start: 20220502, end: 2022
  3. TRAZIMERA [Suspect]
     Active Substance: TRASTUZUMAB-QYYP
     Dosage: 8 MG/KG DAY 1, 6 MG /KG DAY 22 AND Q 3 WEEKS THEREAFTER X 1 YEAR
     Route: 042
     Dates: start: 20220502
  4. TRAZIMERA [Suspect]
     Active Substance: TRASTUZUMAB-QYYP
     Dosage: 8 MG/KG ON DAY 1 FOLLOWED BY 6 MG/KG ON DAY 22 AND Q 3 WEEKS THEREAFTER X 1 YEAR
     Route: 042
     Dates: start: 2022
  5. TRAZIMERA [Suspect]
     Active Substance: TRASTUZUMAB-QYYP
     Dosage: 8 MG/KG DAY1, 6 MG/KG DAY22 AND Q3 WEEKS X1 YEAR, VIA PUMP OVER 30 MINUTES, LEFT ANTECUBITAL
     Route: 042
     Dates: start: 20220715
  6. TRAZIMERA [Suspect]
     Active Substance: TRASTUZUMAB-QYYP
     Dosage: 8 MG/KG DAY1, 6 MG/KG DAY22 AND Q3 WEEKS X1 YEAR, VIA PUMP OVER 30 MINUTES, LEFT ANTECUBITAL
     Route: 042
     Dates: start: 20220824
  7. TRAZIMERA [Suspect]
     Active Substance: TRASTUZUMAB-QYYP
     Dosage: 8 MG/KG DAY1, 6 MG/KG DAY22 AND Q3 WEEKS X1 YEAR, VIA PUMP OVER 30 MINUTES, LEFT FOREARM
     Route: 042
     Dates: start: 20220921
  8. TRAZIMERA [Suspect]
     Active Substance: TRASTUZUMAB-QYYP
     Dosage: 8 MG/KG DAY1, 6 MG/KG DAY22 AND Q3 WEEKS X1 YEAR, VIA PUMP OVER 30 MINUTES, LEFT FOREARM
     Route: 042
     Dates: start: 20220921
  9. TRAZIMERA [Suspect]
     Active Substance: TRASTUZUMAB-QYYP
     Dosage: 408 MG OR 6 MG/KG
     Route: 042
     Dates: start: 20221012
  10. TRAZIMERA [Suspect]
     Active Substance: TRASTUZUMAB-QYYP
     Dosage: 414 MG
     Route: 042
     Dates: start: 20221123
  11. TRAZIMERA [Suspect]
     Active Substance: TRASTUZUMAB-QYYP
     Dosage: UNK
     Route: 042
     Dates: start: 20230104
  12. TRAZIMERA [Suspect]
     Active Substance: TRASTUZUMAB-QYYP
     Dosage: 414 MG
     Route: 042
     Dates: start: 20230126
  13. TRAZIMERA [Suspect]
     Active Substance: TRASTUZUMAB-QYYP
     Dosage: 423 MG
     Route: 042
     Dates: start: 20230223
  14. TRAZIMERA [Suspect]
     Active Substance: TRASTUZUMAB-QYYP
     Dosage: 429 MG
     Route: 042
     Dates: start: 20230316
  15. TRAZIMERA [Suspect]
     Active Substance: TRASTUZUMAB-QYYP
     Dosage: 432 MG
     Route: 042
     Dates: start: 20230406
  16. TRAZIMERA [Suspect]
     Active Substance: TRASTUZUMAB-QYYP
     Dosage: 438 MG
     Route: 042
     Dates: start: 20230427
  17. BACTERIOSTATIC WATER [Concomitant]
     Active Substance: WATER
     Dosage: UNK
  18. DIPHENHYDRAMINE [Concomitant]
     Active Substance: DIPHENHYDRAMINE
     Indication: Premedication
     Dosage: 25 MG
     Route: 048
     Dates: start: 20220715, end: 20220715
  19. STERILE WATER [Concomitant]
     Active Substance: WATER
     Dosage: UNK
  20. STERILE WATER [Concomitant]
     Active Substance: WATER
     Dosage: UNK RECONSTITUTION DILUENT VOLUME 20
     Dates: start: 20220715, end: 20220715

REACTIONS (16)
  - Pyrexia [Unknown]
  - Blood pressure systolic increased [Unknown]
  - Bradycardia [Recovered/Resolved]
  - Off label use [Unknown]
  - Off label use [Unknown]
  - Inappropriate schedule of product administration [Unknown]
  - Product dose omission issue [Unknown]
  - Blood pressure systolic increased [Recovered/Resolved]
  - Blood pressure diastolic increased [Not Recovered/Not Resolved]
  - Infection [Unknown]
  - Weight decreased [Unknown]
  - Lymphadenopathy [Unknown]
  - Ear infection [Unknown]
  - Otorrhoea [Unknown]
  - Weight increased [Not Recovered/Not Resolved]
  - Nasopharyngitis [Recovering/Resolving]

NARRATIVE: CASE EVENT DATE: 20220101
